FAERS Safety Report 5890274-2 (Version None)
Quarter: 2008Q3

REPORT INFORMATION
  Report Type: 
  Country: None (occurrence: None)
  Receive Date: 20080919
  Receipt Date: 20080915
  Transmission Date: 20090109
  Serious: Yes (Other)
  Sender: FDA-Public Use
  Company Number: US-PFIZER INC-2008077945

PATIENT
  Sex: Male
  Weight: 68.181 kg

DRUGS (11)
  1. LIPITOR [Suspect]
     Indication: BLOOD CHOLESTEROL INCREASED
     Route: 048
     Dates: end: 20080101
  2. ZOCOR [Suspect]
     Indication: BLOOD CHOLESTEROL INCREASED
     Dates: start: 20080101, end: 20080101
  3. AMLODIPINE [Concomitant]
  4. VALSARTAN [Concomitant]
  5. INDAPAMIDE [Concomitant]
  6. DOXAZOSIN MESYLATE [Concomitant]
  7. TAMBOCOR [Concomitant]
  8. POTASSIUM CHLORIDE [Concomitant]
  9. WARFARIN SODIUM [Concomitant]
  10. DIAZEPAM [Concomitant]
  11. NEURONTIN [Concomitant]

REACTIONS (3)
  - GAIT DISTURBANCE [None]
  - INTERMITTENT CLAUDICATION [None]
  - MYOPATHY [None]
